FAERS Safety Report 20637095 (Version 1)
Quarter: 2022Q1

REPORT INFORMATION
  Report Type: Spontaneous
  Country: CA (occurrence: CA)
  Receive Date: 20220325
  Receipt Date: 20220325
  Transmission Date: 20220423
  Serious: Yes (Death, Other)
  Sender: FDA-Public Use
  Company Number: CA-ORGANON-O2203CAN001841

PATIENT
  Age: 28 Week
  Weight: 1.49 kg

DRUGS (1)
  1. COZAAR [Suspect]
     Active Substance: LOSARTAN POTASSIUM
     Dosage: UNK
     Route: 064

REACTIONS (2)
  - Renal tubular disorder [Fatal]
  - Foetal exposure during pregnancy [Fatal]
